FAERS Safety Report 4332759-6 (Version None)
Quarter: 2004Q1

REPORT INFORMATION
  Report Type: 
  Country: None (occurrence: None)
  Receive Date: 20040330
  Receipt Date: 20040315
  Transmission Date: 20041129
  Serious: Yes (Death, Life-Threatening, Hospitalization)
  Sender: FDA-Public Use
  Company Number: 2004AP00440

PATIENT
  Age: 84 Year
  Sex: Male
  Weight: 41 kg

DRUGS (7)
  1. SEROQUEL [Suspect]
     Indication: DELIRIUM
     Dosage: 12.5 MG DAILY PO
     Route: 048
     Dates: start: 20031201, end: 20031202
  2. SEROQUEL [Suspect]
     Indication: HYPERKINESIA
     Dosage: 12.5 MG DAILY PO
     Route: 048
     Dates: start: 20031201, end: 20031202
  3. SEROQUEL [Suspect]
     Indication: DELIRIUM
     Dosage: 25 MG BID PO
     Route: 048
     Dates: start: 20031203, end: 20031207
  4. SEROQUEL [Suspect]
     Indication: HYPERKINESIA
     Dosage: 25 MG BID PO
     Route: 048
     Dates: start: 20031203, end: 20031207
  5. SEROQUEL [Suspect]
     Indication: DELIRIUM
     Dosage: 25 MG QID PO
     Route: 048
     Dates: start: 20031208, end: 20031210
  6. SEROQUEL [Suspect]
     Indication: HYPERKINESIA
     Dosage: 25 MG QID PO
     Route: 048
     Dates: start: 20031208, end: 20031210
  7. HALOPERIDOL [Concomitant]

REACTIONS (13)
  - ASTHENIA [None]
  - BRONCHITIS [None]
  - DEPRESSED LEVEL OF CONSCIOUSNESS [None]
  - DYSURIA [None]
  - GENERAL PHYSICAL HEALTH DETERIORATION [None]
  - HAEMOGLOBIN DECREASED [None]
  - HYPOTENSION [None]
  - INCONTINENCE [None]
  - MARKEDLY REDUCED DIETARY INTAKE [None]
  - MYOGLOBINURIA [None]
  - NEUROLEPTIC MALIGNANT SYNDROME [None]
  - RENAL FAILURE [None]
  - RESPIRATORY TRACT INFECTION [None]
